FAERS Safety Report 22589589 (Version 1)
Quarter: 2023Q2

REPORT INFORMATION
  Report Type: Spontaneous
  Country: US (occurrence: None)
  Receive Date: 20230609
  Receipt Date: 20230609
  Transmission Date: 20230722
  Serious: Yes (Hospitalization)
  Sender: FDA-Public Use
  Company Number: None

PATIENT
  Age: 73 Year
  Sex: Male

DRUGS (1)
  1. DIMETHYL FUMARATE [Suspect]
     Active Substance: DIMETHYL FUMARATE
     Dosage: FREQUENCY : TWICE A DAY;?
     Route: 048

REACTIONS (7)
  - COVID-19 [None]
  - Viral infection [None]
  - Hyperkeratosis [None]
  - Balance disorder [None]
  - Fall [None]
  - Skin wound [None]
  - Limb injury [None]

NARRATIVE: CASE EVENT DATE: 20230609
